FAERS Safety Report 13378576 (Version 1)
Quarter: 2017Q1

REPORT INFORMATION
  Report Type: Spontaneous
  Country: CA (occurrence: CA)
  Receive Date: 20170328
  Receipt Date: 20170328
  Transmission Date: 20170429
  Serious: Yes (Other)
  Sender: FDA-Public Use
  Company Number: CA-TEVA-752986USA

PATIENT
  Age: 3 Month
  Sex: Female

DRUGS (3)
  1. MORPHINE [Suspect]
     Active Substance: MORPHINE
     Indication: PROCEDURAL PAIN
     Dosage: 3MG/DOSE
     Route: 048
  2. MORPHINE [Suspect]
     Active Substance: MORPHINE
     Indication: PROCEDURAL PAIN
     Dosage: 15 MG/DOSE
     Route: 048
  3. PARACETAMOL [Concomitant]
     Active Substance: ACETAMINOPHEN
     Indication: PROCEDURAL PAIN
     Dosage: 225MG
     Route: 048

REACTIONS (9)
  - Toxicity to various agents [Recovered/Resolved]
  - Tremor [Recovered/Resolved]
  - Cyanosis [Recovered/Resolved]
  - Incorrect dose administered [Unknown]
  - Miosis [Recovered/Resolved]
  - Somnolence [Recovered/Resolved]
  - Tachycardia [Recovered/Resolved]
  - Apnoea [Recovered/Resolved]
  - Overdose [Unknown]
